FAERS Safety Report 6812640-0 (Version None)
Quarter: 2010Q3

REPORT INFORMATION
  Report Type: 
  Country: None (occurrence: None)
  Receive Date: 20100701
  Receipt Date: 20100620
  Transmission Date: 20110219
  Serious: Yes (Hospitalization, Other)
  Sender: FDA-Public Use
  Company Number: US-ROCHE-669227

PATIENT
  Sex: Female

DRUGS (4)
  1. PEGASYS [Suspect]
     Indication: HEPATITIS C
     Dosage: PRE-FILLED SYRINGE
     Route: 058
     Dates: start: 20090403, end: 20091030
  2. PEGASYS [Suspect]
     Route: 058
     Dates: start: 20100613
  3. RIBAVIRIN [Suspect]
     Indication: HEPATITIS C
     Dosage: TAKEN DAILY IN DIVIDED DOSES
     Route: 048
     Dates: start: 20090403, end: 20091030
  4. RIBASPHERE [Suspect]
     Indication: HEPATITIS C
     Dosage: DIVIDED DOSES
     Route: 048
     Dates: start: 20100613

REACTIONS (13)
  - ALOPECIA [None]
  - ANXIETY [None]
  - BACK PAIN [None]
  - DEPRESSION [None]
  - DIARRHOEA [None]
  - FATIGUE [None]
  - GAIT DISTURBANCE [None]
  - HEPATITIS C [None]
  - INFLUENZA LIKE ILLNESS [None]
  - INJECTION SITE REACTION [None]
  - MENTAL DISORDER [None]
  - MUSCULAR WEAKNESS [None]
  - NAUSEA [None]
